FAERS Safety Report 25928062 (Version 1)
Quarter: 2025Q4

REPORT INFORMATION
  Report Type: Spontaneous
  Country: EU (occurrence: EU)
  Receive Date: 20251016
  Receipt Date: 20251016
  Transmission Date: 20260117
  Serious: Yes (Hospitalization)
  Sender: SANDOZ
  Company Number: EU-ABBVIE-6426733

PATIENT
  Age: 64 Year
  Sex: Male
  Weight: 90 kg

DRUGS (2)
  1. ADALIMUMAB [Suspect]
     Active Substance: ADALIMUMAB
     Indication: Colitis ulcerative
     Dosage: UNK
     Route: 058
     Dates: start: 202201, end: 202212
  2. RINVOQ [Suspect]
     Active Substance: UPADACITINIB
     Indication: Colitis ulcerative
     Dosage: 45 MG, QD
     Route: 048
     Dates: start: 20250728

REACTIONS (6)
  - Joint swelling [Not Recovered/Not Resolved]
  - Synovial cyst [Unknown]
  - Osteoarthritis [Unknown]
  - Chondropathy [Unknown]
  - Meniscus injury [Unknown]
  - Joint effusion [Unknown]

NARRATIVE: CASE EVENT DATE: 20250801
